FAERS Safety Report 25433108 (Version 5)
Quarter: 2025Q4

REPORT INFORMATION
  Report Type: Report from Study
  Country: US (occurrence: US)
  Receive Date: 20250613
  Receipt Date: 20251017
  Transmission Date: 20260117
  Serious: Yes (Other)
  Sender: TAKEDA
  Company Number: US-TAKEDA-2025TUS046944

PATIENT
  Age: 71 Year
  Sex: Male
  Weight: 83.946 kg

DRUGS (4)
  1. FRUQUINTINIB [Suspect]
     Active Substance: FRUQUINTINIB
     Indication: Colon cancer
     Dosage: 5 MILLIGRAM
  2. FRUQUINTINIB [Suspect]
     Active Substance: FRUQUINTINIB
     Dosage: 1 MILLIGRAM
  3. FRUQUINTINIB [Suspect]
     Active Substance: FRUQUINTINIB
     Dosage: 4 MILLIGRAM
  4. FRUQUINTINIB [Suspect]
     Active Substance: FRUQUINTINIB
     Dosage: 4 MILLIGRAM

REACTIONS (11)
  - Neuropathy peripheral [Unknown]
  - Feeling abnormal [Recovering/Resolving]
  - Product dose omission issue [Unknown]
  - Hyperkeratosis [Unknown]
  - Gait disturbance [Unknown]
  - Tenderness [Unknown]
  - Skin fissures [Unknown]
  - Dry skin [Unknown]
  - Abdominal pain upper [Unknown]
  - Fatigue [Unknown]
  - Asthenia [Unknown]
